FAERS Safety Report 5608679-3 (Version None)
Quarter: 2008Q1

REPORT INFORMATION
  Report Type: 
  Country: None (occurrence: None)
  Receive Date: 20080131
  Receipt Date: 20080116
  Transmission Date: 20080703
  Serious: Yes (Other)
  Sender: FDA-Public Use
  Company Number: NO-PFIZER INC-2008008302

PATIENT
  Sex: Male

DRUGS (1)
  1. LYRICA [Suspect]
     Indication: TRIGEMINAL NEURALGIA
     Route: 048

REACTIONS (4)
  - ACTIVITIES OF DAILY LIVING IMPAIRED [None]
  - ASTHENIA [None]
  - DRUG INEFFECTIVE [None]
  - MALAISE [None]
